FAERS Safety Report 17553894 (Version 1)
Quarter: 2020Q1

REPORT INFORMATION
  Report Type: Spontaneous
  Country: US (occurrence: US)
  Receive Date: 20200317
  Receipt Date: 20200317
  Transmission Date: 20200409
  Serious: No
  Sender: FDA-Public Use
  Company Number: US-ASTRAZENECA-2020SE22935

PATIENT
  Sex: Male

DRUGS (5)
  1. METFORMIN [Concomitant]
     Active Substance: METFORMIN HYDROCHLORIDE
     Dosage: UNKNOWN
  2. VITAMIN B [Concomitant]
     Active Substance: VITAMIN B
     Dosage: UNKNOWN
  3. BYDUREON BCISE [Suspect]
     Active Substance: EXENATIDE
     Indication: DIABETES MELLITUS
     Route: 058
  4. LISINOPRIL. [Concomitant]
     Active Substance: LISINOPRIL
     Dosage: UNKNOWN
  5. TRICEBA [Concomitant]
     Dosage: UNKNOWN

REACTIONS (3)
  - Injection site nodule [Unknown]
  - Device leakage [Unknown]
  - Abdominal discomfort [Unknown]
